FAERS Safety Report 6431653-4 (Version None)
Quarter: 2009Q4

REPORT INFORMATION
  Report Type: 
  Country: None (occurrence: None)
  Receive Date: 20091103
  Receipt Date: 20091019
  Transmission Date: 20100525
  Serious: Yes (Other)
  Sender: FDA-Public Use
  Company Number: 2009AP004227

PATIENT
  Age: 67 Year
  Sex: Male

DRUGS (3)
  1. ALENDRONATE SODIUM [Suspect]
     Indication: SPINAL FRACTURE
     Dosage: UNKNOWN; TAB; PO; UNKNOWN
     Dates: start: 20000101
  2. IBANDRONATE SODIUM (IBANDRONATE SODIUM) [Concomitant]
  3. ZOLENDRONIC ACID (ZOLEDRONIC ACID) [Concomitant]

REACTIONS (2)
  - FEMUR FRACTURE [None]
  - FRACTURE DELAYED UNION [None]
